FAERS Safety Report 18134502 (Version 1)
Quarter: 2020Q3

REPORT INFORMATION
  Report Type: Spontaneous
  Country: US (occurrence: US)
  Receive Date: 20200807
  Receipt Date: 20200807
  Transmission Date: 20201103
  Serious: Yes (Other)
  Sender: FDA-Public Use
  Company Number: None

PATIENT
  Age: 93 Year

DRUGS (3)
  1. PRAMOXINE [Concomitant]
     Active Substance: PRAMOXINE
  2. REXULTI [Suspect]
     Active Substance: BREXPIPRAZOLE
     Route: 048
     Dates: start: 201812, end: 202003
  3. QUETIAPINE. [Concomitant]
     Active Substance: QUETIAPINE

REACTIONS (10)
  - Balance disorder [None]
  - Hallucination [None]
  - Hypoaesthesia [None]
  - Vision blurred [None]
  - Photosensitivity reaction [None]
  - Cognitive disorder [None]
  - Disturbance in attention [None]
  - Impaired driving ability [None]
  - Disorientation [None]
  - Dizziness [None]
